FAERS Safety Report 6229680-5 (Version None)
Quarter: 2009Q2

REPORT INFORMATION
  Report Type: 
  Country: None (occurrence: None)
  Receive Date: 20090610
  Receipt Date: 20080805
  Transmission Date: 20091009
  Serious: Yes (Other)
  Sender: FDA-Public Use
  Company Number: IPS_01201_2008

PATIENT
  Sex: Male
  Weight: 81.6475 kg

DRUGS (14)
  1. APOKYN [Suspect]
     Indication: PARKINSON'S DISEASE
     Dosage: 0.2 ML, UP TO 5 TIMES A DAY SUBCUTANEOUS
     Route: 058
     Dates: start: 20050101
  2. MIRAPEX [Suspect]
     Indication: PARKINSON'S DISEASE
     Dosage: 4 MG QD ORAL
     Route: 048
     Dates: end: 20080704
  3. MIRAPEX [Suspect]
     Indication: PARKINSON'S DISEASE
     Dosage: 2 MG QD ORAL
     Route: 048
     Dates: start: 20080704
  4. SINEMET [Suspect]
     Indication: PARKINSON'S DISEASE
     Dosage: 1 DF TID, 25/100 ORAL
     Route: 048
     Dates: end: 20080704
  5. SINEMET [Suspect]
     Indication: PARKINSON'S DISEASE
     Dosage: 1 DF QD, 25/100 ORAL
     Route: 048
     Dates: start: 20080704
  6. SINEMET CR [Suspect]
     Indication: PARKINSON'S DISEASE
     Dosage: 2 DF, 50/200 ORAL
     Route: 048
  7. TIGAN [Concomitant]
  8. QUINAPRIL [Concomitant]
  9. TOPROL-XL [Concomitant]
  10. ACIPHEX [Concomitant]
  11. ALBUTEROL [Concomitant]
  12. ATROVENT [Concomitant]
  13. RITALIN [Concomitant]
  14. ASPIRIN [Concomitant]

REACTIONS (2)
  - LOSS OF CONSCIOUSNESS [None]
  - SLEEP ATTACKS [None]
